FAERS Safety Report 25957596 (Version 2)
Quarter: 2025Q4

REPORT INFORMATION
  Report Type: Spontaneous
  Country: CN (occurrence: CN)
  Receive Date: 20251024
  Receipt Date: 20251103
  Transmission Date: 20260118
  Serious: Yes (Death, Other)
  Sender: AMGEN
  Company Number: CN-AMGEN-CHNSP2025208848

PATIENT

DRUGS (1)
  1. BLINATUMOMAB [Suspect]
     Active Substance: BLINATUMOMAB
     Indication: B-cell type acute leukaemia
     Dosage: UNK
     Route: 065

REACTIONS (12)
  - B-cell type acute leukaemia [Fatal]
  - Infection [Fatal]
  - Transplantation complication [Fatal]
  - Haemorrhage [Fatal]
  - Haematotoxicity [Unknown]
  - Neurotoxicity [Unknown]
  - Cytokine release syndrome [Unknown]
  - Cytopenia [Unknown]
  - Pancreatitis [Unknown]
  - Adverse drug reaction [Unknown]
  - Transaminases increased [Unknown]
  - Pyrexia [Unknown]
